FAERS Safety Report 4463087-6 (Version None)
Quarter: 2004Q3

REPORT INFORMATION
  Report Type: 
  Country: None (occurrence: None)
  Receive Date: 20040928
  Receipt Date: 20040915
  Transmission Date: 20050211
  Serious: Yes (Life-Threatening)
  Sender: FDA-Public Use
  Company Number: 209137

PATIENT
  Age: 53 Year
  Sex: Male

DRUGS (1)
  1. RAPTIVA [Suspect]
     Indication: PSORIASIS
     Dosage: 1 VIAL, 1/WEEK, SUBCUTANEOUS
     Route: 058
     Dates: start: 20040301

REACTIONS (6)
  - ASTHENIA [None]
  - CARDIAC DISORDER [None]
  - CHEST PAIN [None]
  - INFLUENZA LIKE ILLNESS [None]
  - PSORIASIS [None]
  - WEIGHT DECREASED [None]
